FAERS Safety Report 4974352-8 (Version None)
Quarter: 2006Q2

REPORT INFORMATION
  Report Type: 
  Country: None (occurrence: None)
  Receive Date: 20060417
  Receipt Date: 20051026
  Transmission Date: 20061013
  Serious: Yes (Hospitalization)
  Sender: FDA-Public Use
  Company Number: US-MERCK-0510USA09512

PATIENT
  Age: 56 Year
  Sex: Male
  Weight: 118 kg

DRUGS (16)
  1. VIOXX [Suspect]
     Indication: ARTHRITIS
     Route: 048
     Dates: start: 19990615, end: 20010106
  2. AXID [Concomitant]
     Route: 048
  3. LANOXIN [Concomitant]
     Indication: HEART RATE
     Route: 065
     Dates: start: 19990101, end: 20020621
  4. REZULIN [Concomitant]
     Route: 065
  5. ASPIRIN [Concomitant]
     Indication: PROPHYLAXIS
     Route: 048
     Dates: start: 19990101
  6. LASIX [Concomitant]
     Indication: OEDEMA PERIPHERAL
     Route: 065
     Dates: start: 19990101, end: 20050721
  7. PRAVACHOL [Concomitant]
     Route: 065
     Dates: start: 19990123, end: 20000302
  8. IMDUR [Concomitant]
     Indication: CARDIAC DISORDER
     Route: 065
     Dates: start: 19990101
  9. NORVASC [Concomitant]
     Route: 065
  10. ACETAMINOPHEN #3 [Concomitant]
     Route: 065
  11. ALBUTEROL [Concomitant]
     Route: 055
  12. HUMULIN N [Concomitant]
     Route: 065
  13. HUMULIN 70/30 [Concomitant]
     Route: 065
  14. THEOPHYLLINE [Concomitant]
     Route: 048
  15. NEURONTIN [Concomitant]
     Route: 048
  16. ZAROXOLYN [Concomitant]
     Route: 065

REACTIONS (31)
  - ANGINA PECTORIS [None]
  - ARRHYTHMIA [None]
  - ATRIAL FIBRILLATION [None]
  - BLOOD PRESSURE DECREASED [None]
  - BUNDLE BRANCH BLOCK RIGHT [None]
  - CARDIAC DISORDER [None]
  - CARDIAC FAILURE CONGESTIVE [None]
  - CATARACT [None]
  - CHEST PAIN [None]
  - CORONARY ARTERY DISEASE [None]
  - DIABETIC VASCULAR DISORDER [None]
  - DIZZINESS [None]
  - DIZZINESS POSTURAL [None]
  - DYSPNOEA [None]
  - DYSPNOEA PAROXYSMAL NOCTURNAL [None]
  - EXTRASYSTOLES [None]
  - FATIGUE [None]
  - GRAVITATIONAL OEDEMA [None]
  - MYOCARDIAL INFARCTION [None]
  - PALPITATIONS [None]
  - PERIPHERAL VASCULAR DISORDER [None]
  - PERIRECTAL ABSCESS [None]
  - PULMONARY HYPERTENSION [None]
  - RECTAL ABSCESS [None]
  - RESPIRATORY RATE INCREASED [None]
  - SICK SINUS SYNDROME [None]
  - SINUS DISORDER [None]
  - SYNCOPE [None]
  - TRANSIENT ISCHAEMIC ATTACK [None]
  - VENTRICULAR DYSFUNCTION [None]
  - VENTRICULAR HYPERTROPHY [None]
